FAERS Safety Report 5883077-6 (Version None)
Quarter: 2008Q3

REPORT INFORMATION
  Report Type: 
  Country: None (occurrence: None)
  Receive Date: 20080913
  Receipt Date: 20080825
  Transmission Date: 20090109
  Serious: No
  Sender: FDA-Public Use
  Company Number: US-ABBOTT-08P-163-0472815-00

PATIENT
  Sex: Female
  Weight: 74.91 kg

DRUGS (9)
  1. HUMIRA [Suspect]
     Indication: CROHN'S DISEASE
     Route: 058
     Dates: start: 20070901, end: 20070901
  2. HUMIRA [Suspect]
     Route: 058
  3. HUMIRA [Suspect]
     Route: 058
     Dates: end: 20080724
  4. MESALAMINE [Concomitant]
     Indication: CROHN'S DISEASE
     Route: 048
     Dates: start: 20020101
  5. UNIVAS [Concomitant]
     Indication: BUNDLE BRANCH BLOCK LEFT
     Route: 048
     Dates: start: 20010101
  6. FLUTICASONE PROPIONATE [Concomitant]
     Indication: SEASONAL ALLERGY
     Route: 055
     Dates: start: 20050101
  7. FLEXIDRIL [Concomitant]
     Indication: FIBROMYALGIA
     Route: 048
     Dates: start: 20071101
  8. ACETAMINOPHEN W/ CODEINE [Concomitant]
     Indication: FIBROMYALGIA
     Route: 048
     Dates: start: 20060101
  9. PREGABALIN [Concomitant]
     Indication: PARTIAL SEIZURES
     Route: 048
     Dates: start: 20060101

REACTIONS (1)
  - ANAL FISTULA [None]
